FAERS Safety Report 13659484 (Version 1)
Quarter: 2017Q2

REPORT INFORMATION
  Report Type: Spontaneous
  Country: US (occurrence: US)
  Receive Date: 20170616
  Receipt Date: 20170616
  Transmission Date: 20170830
  Serious: Yes (Hospitalization)
  Sender: FDA-Public Use
  Company Number: None

PATIENT
  Age: 77 Year
  Sex: Male
  Weight: 113.4 kg

DRUGS (10)
  1. CA+VITD [Concomitant]
  2. ZOFRAN [Concomitant]
     Active Substance: ONDANSETRON HYDROCHLORIDE
  3. PRIVIGEN [Suspect]
     Active Substance: HUMAN IMMUNOGLOBULIN G
     Indication: HYPOGAMMAGLOBULINAEMIA
     Route: 042
  4. FOLIC ACID. [Concomitant]
     Active Substance: FOLIC ACID
  5. LEVOTHYROXINE. [Concomitant]
     Active Substance: LEVOTHYROXINE
  6. APAP [Concomitant]
     Active Substance: ACETAMINOPHEN
  7. ASA [Concomitant]
     Active Substance: ASPIRIN
  8. COENZYME [Concomitant]
     Active Substance: UBIDECARENONE
  9. MVI [Concomitant]
     Active Substance: VITAMINS
  10. OMEGA3 [Concomitant]

REACTIONS (2)
  - Acute kidney injury [None]
  - Drug hypersensitivity [None]

NARRATIVE: CASE EVENT DATE: 20170426
